FAERS Safety Report 12950552 (Version 2)
Quarter: 2016Q4

REPORT INFORMATION
  Report Type: Spontaneous
  Country: AT (occurrence: AT)
  Receive Date: 20161117
  Receipt Date: 20161128
  Transmission Date: 20170207
  Serious: Yes (Life-Threatening, Other)
  Sender: FDA-Public Use
  Company Number: AT-GLAXOSMITHKLINE-AT2016169756

PATIENT
  Age: 45 Year
  Sex: Female

DRUGS (2)
  1. ACICLOVIR [Suspect]
     Active Substance: ACYCLOVIR
     Indication: HERPES SIMPLEX ENCEPHALITIS
     Dosage: 2250 MG/D
     Route: 042
     Dates: start: 20150827, end: 20150906
  2. ACICLOVIR [Suspect]
     Active Substance: ACYCLOVIR
     Dosage: 3000 MG/D
     Dates: start: 20150907, end: 20150916

REACTIONS (3)
  - Generalised tonic-clonic seizure [Recovering/Resolving]
  - Drug resistance [Recovering/Resolving]
  - Respiratory failure [Recovering/Resolving]
